FAERS Safety Report 8346853-6 (Version None)
Quarter: 2012Q2

REPORT INFORMATION
  Report Type: 
  Country: None (occurrence: None)
  Receive Date: 20120509
  Receipt Date: 20120430
  Transmission Date: 20120825
  Serious: Yes (Hospitalization)
  Sender: FDA-Public Use
  Company Number: DE-ASTRAZENECA-2012SE28038

PATIENT
  Age: 8 Year
  Sex: Female
  Weight: 30.5 kg

DRUGS (1)
  1. EMLA [Suspect]
     Route: 061
     Dates: start: 20111015, end: 20111015

REACTIONS (1)
  - ERYTHEMA MULTIFORME [None]
